FAERS Safety Report 5963781-1 (Version None)
Quarter: 2008Q4

REPORT INFORMATION
  Report Type: 
  Country: None (occurrence: None)
  Receive Date: 20081121
  Receipt Date: 20081121
  Transmission Date: 20090506
  Serious: Yes (Other)
  Sender: FDA-Public Use
  Company Number: None

PATIENT
  Age: 45 Year
  Sex: Female
  Weight: 65.7716 kg

DRUGS (1)
  1. CYMBALTA [Suspect]
     Indication: MOOD SWINGS
     Dosage: 1 TABLET DAILY PO
     Route: 048
     Dates: start: 20081107, end: 20081118

REACTIONS (5)
  - HEADACHE [None]
  - MIGRAINE [None]
  - NAUSEA [None]
  - NIGHT SWEATS [None]
  - WEIGHT DECREASED [None]
